FAERS Safety Report 6837636-4 (Version None)
Quarter: 2010Q3

REPORT INFORMATION
  Report Type: 
  Country: None (occurrence: None)
  Receive Date: 20100713
  Receipt Date: 20070517
  Transmission Date: 20110219
  Serious: No
  Sender: FDA-Public Use
  Company Number: US-PFIZER INC-2007040176

PATIENT
  Sex: Female
  Weight: 63.5 kg

DRUGS (18)
  1. CHANTIX [Suspect]
     Indication: SMOKING CESSATION THERAPY
     Dates: start: 20070510, end: 20070512
  2. PROTONIX [Concomitant]
     Indication: ABDOMINAL DISCOMFORT
  3. LIPITOR [Concomitant]
     Indication: BLOOD CHOLESTEROL INCREASED
  4. LEVOXYL [Concomitant]
     Indication: THYROID DISORDER
  5. TEVETEN [Concomitant]
     Indication: HYPERTENSION
  6. NORVASC [Concomitant]
     Indication: HYPERTENSION
  7. HYDROCHLOROTHIAZIDE [Concomitant]
  8. CELEBREX [Concomitant]
  9. ALLEGRA [Concomitant]
  10. ESTRATEST [Concomitant]
  11. FLONASE [Concomitant]
     Indication: SINUS DISORDER
  12. ALPRAZOLAM [Concomitant]
  13. ACETYLSALICYLIC ACID [Concomitant]
  14. MUCINEX [Concomitant]
  15. VITAMINS [Concomitant]
  16. CALCIUM [Concomitant]
  17. FIBRE, DIETARY [Concomitant]
     Indication: DIVERTICULITIS
  18. IBANDRONATE SODIUM [Concomitant]
     Indication: SINUS DISORDER

REACTIONS (3)
  - DIARRHOEA [None]
  - ERUCTATION [None]
  - MUSCLE SPASMS [None]
